FAERS Safety Report 24611426 (Version 6)
Quarter: 2025Q1

REPORT INFORMATION
  Report Type: Report from Study
  Country: US (occurrence: US)
  Receive Date: 20241113
  Receipt Date: 20250307
  Transmission Date: 20250408
  Serious: Yes (Hospitalization, Other)
  Sender: BOEHRINGER INGELHEIM
  Company Number: US-BoehringerIngelheim-2024-BI-061186

PATIENT
  Age: 64 Year
  Sex: Male

DRUGS (3)
  1. OFEV [Suspect]
     Active Substance: NINTEDANIB
     Indication: Idiopathic pulmonary fibrosis
     Dates: start: 202411
  2. OFEV [Suspect]
     Active Substance: NINTEDANIB
     Indication: Interstitial lung disease
  3. HYDROXYCHLOROQUINE [Concomitant]
     Active Substance: HYDROXYCHLOROQUINE
     Indication: Product used for unknown indication

REACTIONS (17)
  - Arthralgia [Unknown]
  - Idiopathic pulmonary fibrosis [Unknown]
  - Fatigue [Unknown]
  - Tibia fracture [Unknown]
  - Fibula fracture [Unknown]
  - Nausea [Unknown]
  - Diarrhoea [Recovering/Resolving]
  - Depression [Not Recovered/Not Resolved]
  - Foot fracture [Not Recovered/Not Resolved]
  - Autoimmune disorder [Not Recovered/Not Resolved]
  - Speech disorder [Unknown]
  - Dyspnoea [Not Recovered/Not Resolved]
  - Decreased activity [Unknown]
  - Weight increased [Unknown]
  - Constipation [Recovering/Resolving]
  - Osteoporosis [Unknown]
  - Pain [Not Recovered/Not Resolved]

NARRATIVE: CASE EVENT DATE: 20241001
